FAERS Safety Report 6973341-1 (Version None)
Quarter: 2010Q3

REPORT INFORMATION
  Report Type: 
  Country: None (occurrence: None)
  Receive Date: 20100909
  Receipt Date: 20100903
  Transmission Date: 20110219
  Serious: Yes (Hospitalization)
  Sender: FDA-Public Use
  Company Number: US-JNJFOC-20100706526

PATIENT
  Sex: Male
  Weight: 79.38 kg

DRUGS (4)
  1. DURAGESIC-100 [Suspect]
     Indication: SPINAL FRACTURE
     Dosage: 100UG/HR PLUS 25UG/HR
     Route: 062
  2. DURAGESIC-100 [Suspect]
     Indication: PRODUCT USED FOR UNKNOWN INDICATION
     Route: 062
  3. UNKNOWN MEDICATION [Concomitant]
     Indication: BACK DISORDER
     Route: 065
  4. UNKNOWN MEDICATION [Concomitant]
     Indication: CARDIAC DISORDER
     Route: 065

REACTIONS (6)
  - ANGINA PECTORIS [None]
  - HYPERHIDROSIS [None]
  - POOR PERIPHERAL CIRCULATION [None]
  - PRODUCT ADHESION ISSUE [None]
  - SURGERY [None]
  - WRONG TECHNIQUE IN DRUG USAGE PROCESS [None]
